FAERS Safety Report 8290707-0 (Version None)
Quarter: 2012Q2

REPORT INFORMATION
  Report Type: 
  Country: None (occurrence: None)
  Receive Date: 20120417
  Receipt Date: 20110902
  Transmission Date: 20120825
  Serious: No
  Sender: FDA-Public Use
  Company Number: US-ASTRAZENECA-2011SE53483

PATIENT
  Age: 44 Year
  Sex: Male

DRUGS (4)
  1. NEXIUM [Suspect]
     Route: 048
  2. ASPIRIN [Concomitant]
  3. OMEPRAZOLE [Suspect]
     Indication: GASTROOESOPHAGEAL REFLUX DISEASE
     Route: 048
     Dates: start: 20110301, end: 20110501
  4. OMEPRAZOLE [Suspect]
     Indication: EROSIVE OESOPHAGITIS
     Route: 048
     Dates: start: 20110301, end: 20110501

REACTIONS (3)
  - GASTROOESOPHAGEAL REFLUX DISEASE [None]
  - DRUG INEFFECTIVE [None]
  - VOMITING [None]
